FAERS Safety Report 7022944-7 (Version None)
Quarter: 2010Q3

REPORT INFORMATION
  Report Type: 
  Country: None (occurrence: None)
  Receive Date: 20100930
  Receipt Date: 20100921
  Transmission Date: 20110219
  Serious: Yes (Other)
  Sender: FDA-Public Use
  Company Number: US-PFIZER INC-2010120362

PATIENT
  Sex: Female

DRUGS (3)
  1. ADRIAMYCIN PFS [Suspect]
     Indication: BREAST CANCER
     Dosage: UNK
  2. CYCLOPHOSPHAMIDE [Suspect]
     Indication: BREAST CANCER
     Dosage: UNK
  3. TAXOTERE [Suspect]
     Indication: BREAST CANCER
     Dosage: UNK, EVERY CYCLE

REACTIONS (1)
  - COLITIS [None]
